FAERS Safety Report 21302461 (Version 3)
Quarter: 2022Q4

REPORT INFORMATION
  Report Type: Spontaneous
  Country: US (occurrence: US)
  Receive Date: 20220907
  Receipt Date: 20221227
  Transmission Date: 20230113
  Serious: No
  Sender: FDA-Public Use
  Company Number: US-ABBVIE-22K-163-4522618-00

PATIENT
  Sex: Male
  Weight: 65 kg

DRUGS (11)
  1. HUMIRA [Suspect]
     Active Substance: ADALIMUMAB
     Indication: Rheumatoid arthritis
     Route: 058
     Dates: start: 2007, end: 202201
  2. HUMIRA [Suspect]
     Active Substance: ADALIMUMAB
     Route: 058
     Dates: start: 20220117, end: 20220117
  3. HUMIRA [Suspect]
     Active Substance: ADALIMUMAB
     Route: 058
     Dates: start: 20220131, end: 20220131
  4. HUMIRA [Suspect]
     Active Substance: ADALIMUMAB
     Route: 058
     Dates: start: 20220103, end: 20220103
  5. XELJANZ [Suspect]
     Active Substance: TOFACITINIB CITRATE
     Indication: Rheumatoid arthritis
     Route: 065
     Dates: start: 20220830
  6. VITAMIN C [Concomitant]
     Active Substance: ASCORBIC ACID
     Indication: Product used for unknown indication
  7. PREDNISONE [Suspect]
     Active Substance: PREDNISONE
     Indication: Rheumatoid arthritis
     Route: 048
     Dates: start: 20211101, end: 20211117
  8. PREDNISONE [Suspect]
     Active Substance: PREDNISONE
     Indication: Rheumatoid arthritis
     Dosage: FOR 20 DAYS
     Dates: start: 2022
  9. PREDNISONE [Suspect]
     Active Substance: PREDNISONE
     Indication: Rheumatoid arthritis
     Route: 048
     Dates: start: 20220214, end: 20220223
  10. PREDNISONE [Suspect]
     Active Substance: PREDNISONE
     Indication: Rheumatoid arthritis
     Route: 048
     Dates: start: 20220204, end: 20220213
  11. VITAMIN D [Concomitant]
     Active Substance: VITAMIN D NOS
     Indication: Product used for unknown indication

REACTIONS (18)
  - Haemoptysis [Recovered/Resolved]
  - Root canal infection [Unknown]
  - Abdominal pain lower [Unknown]
  - Rheumatoid arthritis [Unknown]
  - Gingival recession [Recovered/Resolved]
  - Tooth infection [Unknown]
  - Gingivitis [Unknown]
  - Gingival bleeding [Recovered/Resolved]
  - Therapeutic product effect decreased [Unknown]
  - Hyperaesthesia [Unknown]
  - Inflammation [Unknown]
  - Blood potassium increased [Unknown]
  - Heart rate decreased [Unknown]
  - Aspartate aminotransferase increased [Unknown]
  - Back pain [Unknown]
  - Hyperaesthesia teeth [Not Recovered/Not Resolved]
  - Oral hyperaesthesia [Unknown]
  - Low density lipoprotein increased [Unknown]

NARRATIVE: CASE EVENT DATE: 20220101
